FAERS Safety Report 26175701 (Version 1)
Quarter: 2025Q4

REPORT INFORMATION
  Report Type: Spontaneous
  Country: US (occurrence: US)
  Receive Date: 20251218
  Receipt Date: 20251218
  Transmission Date: 20260117
  Serious: Yes (Life-Threatening, Hospitalization, Other)
  Sender: DR REDDYS
  Company Number: US-DRL-USA-USA/2025/12/019005

PATIENT
  Age: 54 Year
  Sex: Male

DRUGS (3)
  1. AMIODARONE [Suspect]
     Active Substance: AMIODARONE
     Indication: Arrhythmia prophylaxis
  2. METOPROLOL [Concomitant]
     Active Substance: METOPROLOL
     Indication: Arrhythmia prophylaxis
  3. SOTALOL [Concomitant]
     Active Substance: SOTALOL
     Indication: Arrhythmia prophylaxis

REACTIONS (1)
  - Acute respiratory distress syndrome [Recovered/Resolved]
